FAERS Safety Report 13484561 (Version 1)
Quarter: 2017Q2

REPORT INFORMATION
  Report Type: Spontaneous
  Country: US (occurrence: US)
  Receive Date: 20170426
  Receipt Date: 20170426
  Transmission Date: 20170830
  Serious: No
  Sender: FDA-Public Use
  Company Number: US-PFIZER INC-2017175463

PATIENT
  Age: 20 Year
  Sex: Male
  Weight: 79.37 kg

DRUGS (1)
  1. EFFEXOR XR [Suspect]
     Active Substance: VENLAFAXINE HYDROCHLORIDE
     Indication: ANXIETY
     Dosage: 75 MG, 1X/DAY (FOR ONLY 2 WEEKS)
     Dates: start: 2006, end: 2006

REACTIONS (5)
  - Emotional disorder [Unknown]
  - Attention deficit/hyperactivity disorder [Unknown]
  - Head discomfort [Unknown]
  - Therapeutic response unexpected [Unknown]
  - Learning disability [Unknown]

NARRATIVE: CASE EVENT DATE: 2006
